FAERS Safety Report 4379775-6 (Version None)
Quarter: 2004Q2

REPORT INFORMATION
  Report Type: 
  Country: None (occurrence: None)
  Receive Date: 20040610
  Receipt Date: 20040528
  Transmission Date: 20050107
  Serious: Yes (Hospitalization)
  Sender: FDA-Public Use
  Company Number: 2004-0007113

PATIENT
  Age: 43 Year
  Sex: Male
  Weight: 64 kg

DRUGS (6)
  1. EMTRICITABINE (EMTRICITABINE) [Suspect]
     Indication: HIV INFECTION
     Dosage: 200 MG, ORAL
     Route: 048
     Dates: start: 20021125
  2. TENOFOVIR DISOPROXIL FUMARATE (DOSOPROXIL FUMARATE) [Suspect]
     Indication: HIV INFECTION
     Dosage: 300 MG, ORAL
     Route: 048
     Dates: start: 20021125
  3. KALETRA [Suspect]
     Indication: HIV INFECTION
     Dates: start: 20021125
  4. ACETAMINOPHEN [Suspect]
     Indication: PYREXIA
     Dosage: 1 GM, 1 IN 14 D
     Dates: start: 20040527
  5. BACTRIM [Concomitant]
  6. LOMOTIL [Concomitant]

REACTIONS (7)
  - BLOOD ALKALINE PHOSPHATASE INCREASED [None]
  - COUGH [None]
  - DYSPNOEA [None]
  - GAMMA-GLUTAMYLTRANSFERASE INCREASED [None]
  - MYALGIA [None]
  - PYREXIA [None]
  - UPPER RESPIRATORY TRACT INFECTION [None]
